FAERS Safety Report 11977281 (Version 1)
Quarter: 2016Q1

REPORT INFORMATION
  Report Type: Spontaneous
  Country: US (occurrence: US)
  Receive Date: 20160129
  Receipt Date: 20160129
  Transmission Date: 20160526
  Serious: No
  Sender: FDA-Public Use
  Company Number: US-GLAXOSMITHKLINE-US2016010969

PATIENT
  Age: 23 Year
  Sex: Female

DRUGS (1)
  1. ABREVA [Suspect]
     Active Substance: DOCOSANOL
     Indication: ORAL HERPES
     Dosage: UNK
     Dates: start: 20160120, end: 20160121

REACTIONS (4)
  - Drug ineffective [Unknown]
  - Lip swelling [Recovered/Resolved]
  - Hypersensitivity [Unknown]
  - Emergency care examination [Unknown]

NARRATIVE: CASE EVENT DATE: 20160120
